FAERS Safety Report 15946672 (Version 2)
Quarter: 2019Q1

REPORT INFORMATION
  Report Type: Spontaneous
  Country: GB (occurrence: GB)
  Receive Date: 20190211
  Receipt Date: 20190215
  Transmission Date: 20190417
  Serious: Yes (Hospitalization)
  Sender: FDA-Public Use
  Company Number: GB-JNJFOC-20181120238

PATIENT
  Age: 35 Year
  Sex: Female

DRUGS (1)
  1. SIMPONI [Suspect]
     Active Substance: GOLIMUMAB
     Indication: PSORIATIC ARTHROPATHY
     Route: 058

REACTIONS (4)
  - Exposure during pregnancy [Recovered/Resolved]
  - Infection [Unknown]
  - Inappropriate schedule of product administration [Unknown]
  - Product dose omission [Unknown]

NARRATIVE: CASE EVENT DATE: 2018
